FAERS Safety Report 25752388 (Version 5)
Quarter: 2025Q4

REPORT INFORMATION
  Report Type: Report from Study
  Country: US (occurrence: US)
  Receive Date: 20250902
  Receipt Date: 20251225
  Transmission Date: 20260117
  Serious: Yes (Other)
  Sender: ABBVIE
  Company Number: US-ABBVIE-6437849

PATIENT
  Age: 27 Year
  Sex: Male

DRUGS (2)
  1. RINVOQ [Suspect]
     Active Substance: UPADACITINIB
     Indication: Colitis ulcerative
     Route: 048
     Dates: start: 20240823, end: 20250707
  2. RINVOQ [Suspect]
     Active Substance: UPADACITINIB
     Indication: Colitis ulcerative
     Route: 048
     Dates: start: 20250721

REACTIONS (7)
  - Inguinal hernia [Recovering/Resolving]
  - Crohn^s disease [Recovering/Resolving]
  - Ileostomy closure [Unknown]
  - Ileostomy [Unknown]
  - Cough [Unknown]
  - Defaecation urgency [Recovering/Resolving]
  - Abnormal faeces [Recovering/Resolving]

NARRATIVE: CASE EVENT DATE: 20250101
